FAERS Safety Report 16428974 (Version 4)
Quarter: 2019Q3

REPORT INFORMATION
  Report Type: Spontaneous
  Country: JP (occurrence: JP)
  Receive Date: 20190613
  Receipt Date: 20190913
  Transmission Date: 20191004
  Serious: Yes (Hospitalization, Other)
  Sender: FDA-Public Use
  Company Number: JP-009507513-1906JPN000743J

PATIENT
  Age: 73 Year
  Sex: Male
  Weight: 168 kg

DRUGS (12)
  1. CARBOPLATIN. [Suspect]
     Active Substance: CARBOPLATIN
     Dosage: 360 MILLIGRAM, Q3W
     Route: 041
     Dates: start: 20190508
  2. CRESTOR [Concomitant]
     Active Substance: ROSUVASTATIN CALCIUM
     Indication: DIABETES MELLITUS
     Dosage: 2.5 DOSAGE FORM, QD
     Route: 048
     Dates: start: 20190122
  3. PANVITAN [Concomitant]
     Active Substance: VITAMINS
     Indication: DIABETES MELLITUS
     Dosage: 1 GRAM, QD
     Route: 048
     Dates: start: 20190122
  4. KEYTRUDA [Suspect]
     Active Substance: PEMBROLIZUMAB
     Indication: NON-SMALL CELL LUNG CANCER
     Dosage: 200 MILLIGRAM, Q3W
     Route: 041
     Dates: start: 20190319, end: 20190319
  5. KEYTRUDA [Suspect]
     Active Substance: PEMBROLIZUMAB
     Dosage: 200 MILLIGRAM, Q3W
     Route: 041
     Dates: start: 20190508
  6. ALIMTA [Suspect]
     Active Substance: PEMETREXED DISODIUM
     Indication: NON-SMALL CELL LUNG CANCER
     Dosage: 820 MILLIGRAM, Q3W
     Route: 041
     Dates: start: 20190319, end: 20190319
  7. LANTUS [Concomitant]
     Active Substance: INSULIN GLARGINE
     Indication: DIABETES MELLITUS
     Dosage: 10
     Route: 058
     Dates: start: 20190212
  8. ALIMTA [Suspect]
     Active Substance: PEMETREXED DISODIUM
     Dosage: 820 MILLIGRAM, Q3W
     Route: 041
     Dates: start: 20190508
  9. CARBOPLATIN. [Suspect]
     Active Substance: CARBOPLATIN
     Indication: NON-SMALL CELL LUNG CANCER
     Dosage: 360 MILLIGRAM, Q3W
     Route: 041
     Dates: start: 20190319, end: 20190319
  10. JANUVIA [Concomitant]
     Active Substance: SITAGLIPTIN PHOSPHATE
     Indication: DIABETES MELLITUS
     Dosage: 50 DOSAGE FORM, QD
     Route: 048
     Dates: start: 20190122
  11. FRESMIN S [Concomitant]
     Active Substance: HYDROXOCOBALAMIN
     Indication: ADVERSE REACTION
     Dosage: 1000 UNK, QD
     Route: 051
     Dates: start: 20190215
  12. APIDRA [Concomitant]
     Active Substance: INSULIN GLULISINE
     Indication: DIABETES MELLITUS
     Dosage: 10-8-6
     Route: 058
     Dates: start: 20190212

REACTIONS (2)
  - Nausea [Recovered/Resolved]
  - Infectious pleural effusion [Recovered/Resolved]

NARRATIVE: CASE EVENT DATE: 20190322
